FAERS Safety Report 4591153-3 (Version None)
Quarter: 2005Q1

REPORT INFORMATION
  Report Type: 
  Country: None (occurrence: None)
  Receive Date: 20050225
  Receipt Date: 20050216
  Transmission Date: 20050727
  Serious: Yes (Death)
  Sender: FDA-Public Use
  Company Number: US-JNJFOC-20041200531

PATIENT
  Sex: Female
  Weight: 59.88 kg

DRUGS (4)
  1. RISPERDAL [Suspect]
     Indication: SCHIZOPHRENIA
     Route: 049
     Dates: start: 20041027, end: 20041118
  2. ABILIFY [Concomitant]
     Indication: SCHIZOPHRENIA
  3. SEROQUEL [Concomitant]
     Indication: SCHIZOPHRENIA
     Dosage: 100 TO 400 MG Q HS
  4. DEPAKOTE [Concomitant]
     Indication: DRUG THERAPY

REACTIONS (1)
  - THROMBOTIC THROMBOCYTOPENIC PURPURA [None]
